FAERS Safety Report 8616871-9 (Version None)
Quarter: 2012Q3

REPORT INFORMATION
  Report Type: 
  Country: None (occurrence: None)
  Receive Date: 20120823
  Receipt Date: 20120809
  Transmission Date: 20120928
  Serious: No
  Sender: FDA-Public Use
  Company Number: US-009507513-1208USA004674

PATIENT

DRUGS (6)
  1. IMPLANON [Suspect]
     Dosage: 1 DF, EVERY 3 YEARS
     Route: 059
     Dates: start: 20111230
  2. CYMBALTA [Concomitant]
  3. INSULIN [Concomitant]
     Dosage: 100 UNITS, BID
  4. LIPITOR [Concomitant]
  5. CELEBREX [Concomitant]
     Indication: ARTHRALGIA
  6. METFORMIN HCL [Concomitant]

REACTIONS (2)
  - KNEE OPERATION [None]
  - UNINTENDED PREGNANCY [None]
